FAERS Safety Report 9865869 (Version 2)
Quarter: 2014Q1

REPORT INFORMATION
  Report Type: Spontaneous
  Country: US (occurrence: US)
  Receive Date: 20140203
  Receipt Date: 20140203
  Transmission Date: 20141002
  Serious: No
  Sender: FDA-Public Use
  Company Number: US-ALLERGAN-1312193US

PATIENT
  Age: 67 Year
  Sex: Female

DRUGS (9)
  1. RESTASIS [Suspect]
     Indication: DRY EYE
     Dosage: UNK, QD
     Dates: start: 20130825
  2. RESTASIS [Suspect]
     Dosage: 2.5 GTT, SINGLE
     Route: 047
     Dates: start: 20130810, end: 20130810
  3. GENTEAL EYE DROPS NOS [Concomitant]
     Indication: DRY EYE
     Dosage: 2 GTT, UNK
     Route: 047
  4. EQUATE ARTIFICIAL TEARS NOS [Concomitant]
     Indication: DRY EYE
     Dosage: UNK
     Route: 047
  5. NAPROXEN [Concomitant]
     Indication: MIGRAINE PROPHYLAXIS
     Dosage: UNK UNK, PRN
     Route: 048
  6. NAPROXEN [Concomitant]
     Indication: BACK PAIN
  7. ASA [Concomitant]
     Indication: PRODUCT USED FOR UNKNOWN INDICATION
     Dosage: UNK
  8. CAFERGOT [Concomitant]
     Indication: MIGRAINE
     Dosage: UNK UNK, PRN
     Route: 048
  9. TYLENOL                            /00020001/ [Concomitant]
     Indication: PRODUCT USED FOR UNKNOWN INDICATION
     Dosage: UNK

REACTIONS (8)
  - Blood pressure increased [Unknown]
  - Visual impairment [Unknown]
  - Incorrect dose administered [Unknown]
  - Inappropriate schedule of drug administration [Unknown]
  - Dizziness [Recovered/Resolved]
  - Eye pain [Unknown]
  - Dry eye [Unknown]
  - Lacrimation increased [Unknown]
